FAERS Safety Report 7491056-0 (Version None)
Quarter: 2011Q2

REPORT INFORMATION
  Report Type: 
  Country: None (occurrence: None)
  Receive Date: 20110519
  Receipt Date: 20110509
  Transmission Date: 20111010
  Serious: Yes (Life-Threatening, Hospitalization, Other)
  Sender: FDA-Public Use
  Company Number: GB-ABBOTT-11P-167-0725791-00

PATIENT
  Age: 73 Year
  Sex: Male

DRUGS (2)
  1. CYPROTERONE [Concomitant]
     Indication: PROSTATE CANCER
  2. PROSTAP 3 [Suspect]
     Indication: PROSTATE CANCER
     Dosage: DAILY DOSE: 11.25MG
     Route: 050
     Dates: start: 20110506

REACTIONS (6)
  - DYSPNOEA [None]
  - LIP SWELLING [None]
  - PHARYNGEAL OEDEMA [None]
  - SWOLLEN TONGUE [None]
  - OEDEMA MOUTH [None]
  - DYSPHAGIA [None]
